FAERS Safety Report 5983172-7 (Version None)
Quarter: 2008Q4

REPORT INFORMATION
  Report Type: 
  Country: None (occurrence: None)
  Receive Date: 20081208
  Receipt Date: 20080313
  Transmission Date: 20090506
  Serious: No
  Sender: FDA-Public Use
  Company Number: US-BAYER-200811157BCC

PATIENT
  Age: 33 Year
  Sex: Female
  Weight: 60 kg

DRUGS (2)
  1. ALEVE-D SINUS + COLD [Suspect]
     Indication: SINUS DISORDER
     Dosage: AS USED: 0.25 DF
     Route: 048
     Dates: start: 20080311
  2. ALEVE-D SINUS + COLD [Suspect]
     Dosage: AS USED: 0.25 DF
     Route: 048
     Dates: start: 20080313

REACTIONS (1)
  - PALPITATIONS [None]
